FAERS Safety Report 14691911 (Version 4)
Quarter: 2018Q2

REPORT INFORMATION
  Report Type: Report from Study
  Country: None (occurrence: AT)
  Receive Date: 20180329
  Receipt Date: 20180430
  Transmission Date: 20180711
  Serious: Yes (Death, Hospitalization, Disabling)
  Sender: FDA-Public Use
  Company Number: AT-ABBVIE-18K-009-2298460-00

PATIENT
  Age: 88 Year
  Sex: Male

DRUGS (2)
  1. DUODOPA [Suspect]
     Active Substance: CARBIDOPA\LEVODOPA
     Route: 050
  2. DUODOPA [Suspect]
     Active Substance: CARBIDOPA\LEVODOPA
     Indication: PARKINSON^S DISEASE
     Dosage: 16 H THERAPY: MD: 8ML?CR DAYTIME: 3.2 ML/H?ED. 2 ML
     Route: 050
     Dates: start: 20151103

REACTIONS (6)
  - General physical health deterioration [Fatal]
  - Device occlusion [Unknown]
  - Cerebrovascular accident [Unknown]
  - Pneumonia [Fatal]
  - Dementia [Unknown]
  - Somnolence [Not Recovered/Not Resolved]

NARRATIVE: CASE EVENT DATE: 2018
